FAERS Safety Report 7226275-1 (Version None)
Quarter: 2011Q1

REPORT INFORMATION
  Report Type: 
  Country: None (occurrence: None)
  Receive Date: 20110114
  Receipt Date: 20110105
  Transmission Date: 20110831
  Serious: Yes (Hospitalization, Other)
  Sender: FDA-Public Use
  Company Number: PHHY2010US86946

PATIENT
  Sex: Male
  Weight: 29.5 kg

DRUGS (5)
  1. HYDROXYUREA [Concomitant]
     Dosage: 1000 MG, DAILY
     Route: 048
     Dates: start: 20070101
  2. BECLOMETHASONE DIPROPIONATE [Concomitant]
     Indication: ASTHMA
     Dosage: 2 PUFF , BID
  3. EXJADE [Suspect]
     Indication: SICKLE CELL ANAEMIA
     Dosage: 1000 MG, QD
     Route: 048
  4. DEFEROXAMINE MESYLATE [Concomitant]
     Indication: IRON OVERLOAD
     Dosage: 360 MG, UNK
     Route: 042
     Dates: start: 20100625
  5. IBUPROFEN [Concomitant]
     Indication: PAIN
     Dosage: 200 MG, UNK

REACTIONS (2)
  - CEREBRAL INFARCTION [None]
  - CEREBROVASCULAR ACCIDENT [None]
